FAERS Safety Report 8410348 (Version 2)
Quarter: 2014Q1

REPORT INFORMATION
  Report Type: Spontaneous
  Country: US (occurrence: US)
  Receive Date: 20120217
  Receipt Date: 20140102
  Transmission Date: 20141002
  Serious: No
  Sender: FDA-Public Use
  Company Number: US-PFIZER INC-2012040502

PATIENT
  Sex: 0

DRUGS (1)
  1. CHANTIX [Suspect]
     Indication: TOBACCO USER
     Dosage: UNK

REACTIONS (4)
  - Weight increased [Recovering/Resolving]
  - Off label use [Unknown]
  - Ex-tobacco user [Unknown]
  - Therapeutic response unexpected [Unknown]
